FAERS Safety Report 7488911-4 (Version None)
Quarter: 2011Q2

REPORT INFORMATION
  Report Type: 
  Country: None (occurrence: None)
  Receive Date: 20110518
  Receipt Date: 20110420
  Transmission Date: 20111010
  Serious: Yes (Other)
  Sender: FDA-Public Use
  Company Number: US-BAYER-201038924NA

PATIENT
  Age: 28 Year
  Sex: Female
  Weight: 99.773 kg

DRUGS (1)
  1. YASMIN [Suspect]
     Indication: CONTRACEPTION
     Dosage: UNK
     Route: 048
     Dates: start: 20010101, end: 20060101

REACTIONS (6)
  - HYPERTENSION [None]
  - FLUID RETENTION [None]
  - GALLBLADDER DISORDER [None]
  - PALPITATIONS [None]
  - STRESS [None]
  - DEPRESSION [None]
